FAERS Safety Report 22216273 (Version 1)
Quarter: 2023Q2

REPORT INFORMATION
  Report Type: Spontaneous
  Country: JP (occurrence: JP)
  Receive Date: 20230417
  Receipt Date: 20230417
  Transmission Date: 20230721
  Serious: Yes (Other)
  Sender: FDA-Public Use
  Company Number: JP-AMGEN-JPNSP2023062213

PATIENT
  Age: 16 Year
  Sex: Male

DRUGS (2)
  1. ADALIMUMAB [Suspect]
     Active Substance: ADALIMUMAB
     Indication: Crohn^s disease
     Dosage: 40 MILLIGRAM (FOR 2 WEEKS)
     Route: 065
  2. ADALIMUMAB [Suspect]
     Active Substance: ADALIMUMAB
     Dosage: 160 MILLIGRAM
     Route: 065

REACTIONS (5)
  - Crohn^s disease [Recovered/Resolved]
  - Myelodysplastic syndrome [Unknown]
  - Neutropenia [Recovering/Resolving]
  - Therapeutic product effect decreased [Unknown]
  - Pyrexia [Unknown]
